FAERS Safety Report 15196999 (Version 2)
Quarter: 2020Q3

REPORT INFORMATION
  Report Type: Report from Study
  Country: NL (occurrence: NL)
  Receive Date: 20180725
  Receipt Date: 20180730
  Transmission Date: 20201104
  Serious: Yes (Hospitalization)
  Sender: FDA-Public Use
  Company Number: NL-JNJFOC-20180706766

PATIENT
  Age: 76 Year
  Sex: Female
  Weight: 72 kg

DRUGS (7)
  1. TRABECTEDIN [Suspect]
     Active Substance: TRABECTEDIN
     Indication: OVARIAN CANCER RECURRENT
     Dosage: CUMULATIVE DOSE TO FIRST REACTION WAS 4.4 MG/M2
     Route: 042
     Dates: start: 20170526, end: 20170818
  2. RIVAROXABAN [Suspect]
     Active Substance: RIVAROXABAN
     Indication: ATRIAL FIBRILLATION
     Dosage: 5 YEARS
     Route: 048
     Dates: start: 20120101, end: 20170827
  3. TRABECTEDIN [Suspect]
     Active Substance: TRABECTEDIN
     Route: 042
  4. PLD [Suspect]
     Active Substance: DOXORUBICIN HYDROCHLORIDE
     Route: 042
  5. RIVAROXABAN [Suspect]
     Active Substance: RIVAROXABAN
     Indication: ATRIAL FIBRILLATION
     Dosage: LOWER DOSE
     Route: 048
  6. PLD [Suspect]
     Active Substance: DOXORUBICIN HYDROCHLORIDE
     Indication: OVARIAN CANCER RECURRENT
     Route: 042
     Dates: start: 20170526, end: 20170818
  7. CARBASALATE CALCIUM [Suspect]
     Active Substance: CARBASPIRIN CALCIUM
     Indication: PERCUTANEOUS CORONARY INTERVENTION
     Dosage: 9 YEARS
     Route: 048
     Dates: start: 20080101, end: 20170825

REACTIONS (1)
  - Intestinal haemorrhage [Recovered/Resolved]

NARRATIVE: CASE EVENT DATE: 20170825
